FAERS Safety Report 6331228-1 (Version None)
Quarter: 2009Q3

REPORT INFORMATION
  Report Type: 
  Country: None (occurrence: None)
  Receive Date: 20090827
  Receipt Date: 20090817
  Transmission Date: 20100115
  Serious: Yes (Death)
  Sender: FDA-Public Use
  Company Number: JP-MERCK-0908USA03643

PATIENT
  Age: 78 Year
  Sex: Male

DRUGS (3)
  1. PEPCID [Suspect]
     Indication: SKIN INDURATION
     Route: 048
     Dates: start: 19980101
  2. LIMAPROST [Concomitant]
     Route: 048
     Dates: start: 19970401
  3. PREDNISOLONE [Concomitant]
     Indication: SKIN INDURATION
     Route: 065
     Dates: start: 19980101

REACTIONS (1)
  - OESOPHAGEAL CARCINOMA [None]
